FAERS Safety Report 8256945-8 (Version None)
Quarter: 2012Q2

REPORT INFORMATION
  Report Type: 
  Country: None (occurrence: None)
  Receive Date: 20120403
  Receipt Date: 20120326
  Transmission Date: 20120825
  Serious: Yes (Other)
  Sender: FDA-Public Use
  Company Number: CA-JNJFOC-20120312648

PATIENT
  Sex: Female
  Weight: 75 kg

DRUGS (4)
  1. IRON [Concomitant]
     Route: 065
  2. REMICADE [Suspect]
     Indication: COLITIS ULCERATIVE
     Dosage: 6TH INFUSION
     Route: 042
     Dates: start: 20120130
  3. WARFARIN SODIUM [Concomitant]
     Dosage: OFF WARFARIN FOR 2.5 WEEKS
     Route: 065
  4. REMICADE [Suspect]
     Route: 042
     Dates: start: 20110101

REACTIONS (1)
  - VISUAL IMPAIRMENT [None]
